FAERS Safety Report 5546150-8 (Version None)
Quarter: 2007Q4

REPORT INFORMATION
  Report Type: 
  Country: None (occurrence: None)
  Receive Date: 20071206
  Receipt Date: 20071119
  Transmission Date: 20080405
  Serious: Yes (Death)
  Sender: FDA-Public Use
  Company Number: 2007S1012068

PATIENT
  Age: 76 Year
  Sex: Female

DRUGS (4)
  1. WARFARIN SODIUM [Suspect]
     Dosage: ORAL
     Route: 048
  2. COLPERMIN /01649803/ (MENTHA X PIPERITA OIL) (CON.) [Concomitant]
  3. DIGOXIN (DIGOXIN) (CON.) [Concomitant]
  4. FUROSEMIDE (FUROSEMIDE) (CON.) [Concomitant]

REACTIONS (1)
  - CEREBRAL HAEMORRHAGE [None]
